FAERS Safety Report 12729497 (Version 2)
Quarter: 2017Q2

REPORT INFORMATION
  Report Type: Spontaneous
  Country: ES (occurrence: ES)
  Receive Date: 20160909
  Receipt Date: 20170508
  Transmission Date: 20170830
  Serious: Yes (Other)
  Sender: FDA-Public Use
  Company Number: ES-JNJFOC-20160908397

PATIENT
  Age: 69 Year
  Sex: Female
  Weight: 62 kg

DRUGS (13)
  1. BENICAR [Concomitant]
     Active Substance: OLMESARTAN MEDOXOMIL
     Indication: HYPERTENSION
     Dosage: 1-0-1
     Route: 048
  2. HYGROTON [Concomitant]
     Active Substance: CHLORTHALIDONE
     Indication: HYPERTENSION
     Dosage: 1-0-0
     Route: 048
  3. HIDROFEROL [Concomitant]
     Active Substance: CALCIFEDIOL
     Indication: CHRONIC KIDNEY DISEASE
     Route: 065
  4. STELARA [Suspect]
     Active Substance: USTEKINUMAB
     Indication: PSORIASIS
     Route: 058
     Dates: start: 20100416, end: 20160517
  5. INSULIN [Concomitant]
     Active Substance: INSULIN NOS
     Indication: DIABETES MELLITUS
     Dosage: AT NIGHT
     Route: 058
  6. ADIRO [Concomitant]
     Active Substance: ASPIRIN
     Indication: MYOCARDIAL ISCHAEMIA
     Dosage: EVERY AFTERNOON
     Route: 048
  7. DOXIUM FUERTE [Concomitant]
     Indication: CHRONIC KIDNEY DISEASE
     Dosage: 1-0-1
     Route: 065
  8. FERBISOL [Concomitant]
     Indication: ANAEMIA
     Dosage: 1-0-0
     Route: 048
  9. VIPDOMET [Concomitant]
     Active Substance: ALOGLIPTIN BENZOATE\METFORMIN HYDROCHLORIDE
     Indication: DIABETES MELLITUS
     Dosage: 12.5 MG OR 850 MG, 0-0-1
     Route: 048
  10. APIDRA [Concomitant]
     Active Substance: INSULIN GLULISINE
     Indication: DIABETES MELLITUS
     Dosage: 6-7UI
     Route: 058
  11. PANTECTA [Concomitant]
     Active Substance: PANTOPRAZOLE SODIUM
     Indication: GASTROINTESTINAL DISORDER THERAPY
     Dosage: 1-0-0
     Route: 048
  12. EZETIMIBE. [Concomitant]
     Active Substance: EZETIMIBE
     Indication: DYSLIPIDAEMIA
     Dosage: 10 MG OR 80 MG, 0-0-1
     Route: 048
  13. ATORVASTATIN [Concomitant]
     Active Substance: ATORVASTATIN
     Indication: DYSLIPIDAEMIA
     Dosage: 10 MG OR 80 MG, 0-0-1
     Route: 048

REACTIONS (1)
  - Lung neoplasm malignant [Recovering/Resolving]

NARRATIVE: CASE EVENT DATE: 201511
